FAERS Safety Report 9355262 (Version 1)
Quarter: 2013Q2

REPORT INFORMATION
  Report Type: Spontaneous
  Country: US (occurrence: None)
  Receive Date: 20130618
  Receipt Date: 20130618
  Transmission Date: 20140414
  Serious: Yes (Life-Threatening)
  Sender: FDA-Public Use
  Company Number: None

PATIENT
  Sex: 0

DRUGS (1)
  1. SAXAGLIPTIN [Suspect]
     Route: 048

REACTIONS (3)
  - Weight decreased [None]
  - Pancreatic mass [None]
  - Endometrial disorder [None]
